FAERS Safety Report 5740636-9 (Version None)
Quarter: 2008Q2

REPORT INFORMATION
  Report Type: 
  Country: None (occurrence: None)
  Receive Date: 20080516
  Receipt Date: 20080506
  Transmission Date: 20081010
  Serious: Yes (Hospitalization)
  Sender: FDA-Public Use
  Company Number: B0519325A

PATIENT
  Age: 87 Year
  Sex: Female

DRUGS (7)
  1. DEROXAT [Suspect]
     Indication: DEPRESSION
     Route: 048
     Dates: start: 20071116, end: 20080217
  2. CRESTOR [Concomitant]
     Indication: HYPERCHOLESTEROLAEMIA
     Dosage: 5MG PER DAY
     Route: 048
  3. LASILIX [Concomitant]
     Dosage: 20MG PER DAY
     Route: 048
  4. PLAVIX [Concomitant]
     Indication: ISCHAEMIC HEART DISEASE PROPHYLAXIS
     Dosage: 75MG PER DAY
     Route: 048
  5. SECTRAL [Concomitant]
     Indication: ISCHAEMIC HEART DISEASE PROPHYLAXIS
     Dosage: 200MG PER DAY
     Route: 048
  6. DISCOTRINE [Concomitant]
     Dosage: 5MG PER DAY
     Route: 062
  7. ZOLPIDEM TARTRATE [Concomitant]
     Route: 048

REACTIONS (8)
  - ARTHRITIS [None]
  - CHONDROCALCINOSIS [None]
  - DERMATITIS BULLOUS [None]
  - INFLAMMATION [None]
  - LEUKOCYTOCLASTIC VASCULITIS [None]
  - PETECHIAE [None]
  - PURPURA [None]
  - SECRETION DISCHARGE [None]
